FAERS Safety Report 7458011-8 (Version None)
Quarter: 2011Q2

REPORT INFORMATION
  Report Type: 
  Country: None (occurrence: None)
  Receive Date: 20110503
  Receipt Date: 20110503
  Transmission Date: 20111010
  Serious: Yes (Other)
  Sender: FDA-Public Use
  Company Number: None

PATIENT
  Age: 49 Year
  Sex: Female
  Weight: 122.4712 kg

DRUGS (2)
  1. CYTOMEL [Suspect]
     Indication: HYPOTHYROIDISM
     Dosage: 1 - 5 MCG PILL EVERY OTHER DAY PO
     Route: 048
  2. LEVOXYL [Suspect]
     Indication: HYPOTHYROIDISM
     Dosage: 1 - 50 MCG PILL DAILY PO
     Route: 048

REACTIONS (9)
  - MIGRAINE [None]
  - HYPOTHYROIDISM [None]
  - DYSPEPSIA [None]
  - PYREXIA [None]
  - FATIGUE [None]
  - RENAL PAIN [None]
  - ABDOMINAL PAIN UPPER [None]
  - MUSCLE SPASMS [None]
  - DIARRHOEA [None]
